FAERS Safety Report 6242278-8 (Version None)
Quarter: 2009Q2

REPORT INFORMATION
  Report Type: 
  Country: None (occurrence: None)
  Receive Date: 20090622
  Receipt Date: 20090622
  Transmission Date: 20091009
  Serious: No
  Sender: FDA-Public Use
  Company Number: None

PATIENT
  Sex: Female
  Weight: 77.1115 kg

DRUGS (1)
  1. ZICAM GEL SWABS ZINCUM GLUCONICUM 2X ZICAM LLC, SCOTTSDALE, AZ [Suspect]
     Dosage: 1 SWAB 3 X DAILYE

REACTIONS (2)
  - AGEUSIA [None]
  - ANOSMIA [None]
